FAERS Safety Report 17617566 (Version 3)
Quarter: 2020Q2

REPORT INFORMATION
  Report Type: Spontaneous
  Country: US (occurrence: US)
  Receive Date: 20200402
  Receipt Date: 20200615
  Transmission Date: 20200713
  Serious: Yes (Hospitalization, Other)
  Sender: FDA-Public Use
  Company Number: US-RIGEL PHARMACEUTICALS, INC.-2020FOS000135

PATIENT
  Sex: Female

DRUGS (3)
  1. TAVALISSE [Suspect]
     Active Substance: FOSTAMATINIB
     Indication: IMMUNE THROMBOCYTOPENIA
     Dosage: 150 MG, BID
     Route: 048
  2. TAVALISSE [Suspect]
     Active Substance: FOSTAMATINIB
     Dosage: 150 MG, BID
     Route: 048
  3. PREDNISONE. [Concomitant]
     Active Substance: PREDNISONE
     Indication: PRODUCT USED FOR UNKNOWN INDICATION
     Dosage: UNK

REACTIONS (4)
  - Musculoskeletal stiffness [Unknown]
  - Surgery [Unknown]
  - Pain in extremity [Unknown]
  - Arthritis infective [Unknown]
